FAERS Safety Report 12230715 (Version 1)
Quarter: 2016Q1

REPORT INFORMATION
  Report Type: Spontaneous
  Country: US (occurrence: None)
  Receive Date: 20160331
  Receipt Date: 20160331
  Transmission Date: 20160526
  Serious: No
  Sender: FDA-Public Use
  Company Number: None

PATIENT

DRUGS (1)
  1. NORTRIPTYLINE, 10MG TEVA [Suspect]
     Active Substance: NORTRIPTYLINE

REACTIONS (2)
  - Product quality issue [None]
  - Insomnia [None]
